FAERS Safety Report 5945070-4 (Version None)
Quarter: 2008Q4

REPORT INFORMATION
  Report Type: 
  Country: None (occurrence: None)
  Receive Date: 20081107
  Receipt Date: 20081106
  Transmission Date: 20090506
  Serious: Yes (Death)
  Sender: FDA-Public Use
  Company Number: US-ASTRAZENECA-2008UW24856

PATIENT
  Sex: Male

DRUGS (7)
  1. ELAVIL [Suspect]
     Indication: DEPRESSION
     Route: 048
  2. AMBIEN [Suspect]
     Indication: INSOMNIA
  3. ZYPREXA [Concomitant]
  4. SYMBYAX [Concomitant]
  5. CYMBALTA [Concomitant]
  6. WELLBUTRIN [Concomitant]
  7. EXELON [Concomitant]

REACTIONS (3)
  - COMPLETED SUICIDE [None]
  - DRUG TOXICITY [None]
  - MULTIPLE DRUG OVERDOSE [None]
